FAERS Safety Report 10034530 (Version 1)
Quarter: 2014Q1

REPORT INFORMATION
  Report Type: Spontaneous
  Country: US (occurrence: None)
  Receive Date: 20140306
  Receipt Date: 20140306
  Transmission Date: 20141002
  Serious: Yes (Hospitalization, Other)
  Sender: FDA-Public Use
  Company Number: 163-21880-13021309

PATIENT
  Age: 72 Year
  Sex: Female

DRUGS (18)
  1. REVLIMID (LENALIDOMIDE) (15 MILLIGRAM, CAPSULES) [Suspect]
     Indication: PLASMA CELL MYELOMA
     Dosage: 1 IN 1 D
     Route: 048
     Dates: start: 20120117
  2. CARBONATE/VITAMIN D3 (LEKOVIT CA) [Concomitant]
  3. LIDOCAINE [Concomitant]
  4. TERBINAFINE [Concomitant]
  5. METRONIDAZOLE [Concomitant]
  6. FLUCONAZOLE [Concomitant]
  7. LEVOFLOXACIN [Concomitant]
  8. GABAPENTIN [Concomitant]
  9. ALBUTEROL HFA (SALBUTAMOL) [Concomitant]
  10. IPRATROPIUM [Concomitant]
  11. FENTANYL [Concomitant]
  12. MORPHINE-IR (MORPHINE) [Concomitant]
  13. ZOLPIDEM [Concomitant]
  14. SENNA-DOCUSATE (COLOXYL WITH SENNA) [Concomitant]
  15. FENTANYL CITRATE [Concomitant]
  16. PREDNISONE [Concomitant]
  17. POLYETHYLENE GLYCOL (MACROGOL) [Concomitant]
  18. ASPIRIN (ACETYLSALICYLIC ACID) [Concomitant]

REACTIONS (4)
  - Pancytopenia [None]
  - Pneumonia [None]
  - Pyrexia [None]
  - Clostridium difficile infection [None]
